FAERS Safety Report 8087743-6 (Version None)
Quarter: 2012Q1

REPORT INFORMATION
  Report Type: 
  Country: None (occurrence: None)
  Receive Date: 20120128
  Receipt Date: 20110526
  Transmission Date: 20120608
  Serious: No
  Sender: FDA-Public Use
  Company Number: US-ABBOTT-11P-163-0728768-00

PATIENT
  Sex: Female

DRUGS (7)
  1. CELEBREX [Concomitant]
     Indication: RHEUMATOID ARTHRITIS
  2. PREVACID [Concomitant]
     Indication: GASTROOESOPHAGEAL REFLUX DISEASE
  3. OXYCODONE HCL [Concomitant]
     Indication: PAIN
  4. SINGULAIR [Concomitant]
     Indication: ASTHMA
  5. ATENOLOL [Concomitant]
     Indication: HYPERTENSION
  6. METHOTREXATE [Concomitant]
     Indication: RHEUMATOID ARTHRITIS
  7. HUMIRA [Suspect]
     Indication: RHEUMATOID ARTHRITIS
     Dates: start: 20100521

REACTIONS (4)
  - ARTHRALGIA [None]
  - JOINT STIFFNESS [None]
  - DRUG INEFFECTIVE [None]
  - JOINT SWELLING [None]
